FAERS Safety Report 5416484-6 (Version None)
Quarter: 2007Q3

REPORT INFORMATION
  Report Type: 
  Country: None (occurrence: None)
  Receive Date: 20070816
  Receipt Date: 20070809
  Transmission Date: 20080115
  Serious: Yes (Hospitalization)
  Sender: FDA-Public Use
  Company Number: LB-ABBOTT-07P-093-0377398-00

PATIENT
  Age: 40 Year
  Sex: Male

DRUGS (4)
  1. DEPAKENE [Suspect]
     Indication: AGITATION
     Dosage: 500MG IN THE MORNING, 500MG IN THE AFTERNOON, 1000MG AT BEDTIME
     Route: 048
  2. DEPAKENE [Suspect]
     Indication: IMPULSIVE BEHAVIOUR
  3. CLONAZEPAM [Concomitant]
     Indication: ANXIETY
     Route: 048
  4. CHLORPROMAZINE [Concomitant]
     Indication: SEDATIVE THERAPY
     Route: 048

REACTIONS (4)
  - CONFUSIONAL STATE [None]
  - DELIRIUM [None]
  - DISORIENTATION [None]
  - MEMORY IMPAIRMENT [None]
